FAERS Safety Report 23069862 (Version 2)
Quarter: 2023Q4

REPORT INFORMATION
  Report Type: Spontaneous
  Country: SI (occurrence: SI)
  Receive Date: 20231016
  Receipt Date: 20231026
  Transmission Date: 20240110
  Serious: Yes (Death, Other)
  Sender: FDA-Public Use
  Company Number: SI-ALNYLAM PHARMACEUTICALS, INC.-ALN-2023-005289

PATIENT

DRUGS (1)
  1. GIVLAARI [Suspect]
     Active Substance: GIVOSIRAN SODIUM
     Indication: Porphyria acute
     Dosage: UNK
     Route: 065
     Dates: start: 20231021

REACTIONS (3)
  - Pneumonia [Fatal]
  - Pancreatitis acute [Unknown]
  - Depression [Unknown]
